FAERS Safety Report 8450094-1 (Version None)
Quarter: 2012Q2

REPORT INFORMATION
  Report Type: 
  Country: None (occurrence: None)
  Receive Date: 20120614
  Receipt Date: 20120614
  Transmission Date: 20120825
  Serious: Yes (Life-Threatening)
  Sender: FDA-Public Use
  Company Number: None

PATIENT
  Sex: Female
  Weight: 47.6277 kg

DRUGS (2)
  1. LEVETIRACETAM [Suspect]
     Indication: ANGELMAN'S SYNDROME
     Dosage: LEVETIRACETAM 3 BID ORALLY
     Route: 048
     Dates: start: 20120604, end: 20120613
  2. LEVETIRACETAM [Suspect]
     Indication: EPILEPSY
     Dosage: LEVETIRACETAM 3 BID ORALLY
     Route: 048
     Dates: start: 20120604, end: 20120613

REACTIONS (2)
  - PETIT MAL EPILEPSY [None]
  - PRODUCT SUBSTITUTION ISSUE [None]
